FAERS Safety Report 5390450-1 (Version None)
Quarter: 2007Q3

REPORT INFORMATION
  Report Type: 
  Country: None (occurrence: None)
  Receive Date: 20070718
  Receipt Date: 20070410
  Transmission Date: 20080115
  Serious: No
  Sender: FDA-Public Use
  Company Number: US-KINGPHARMUSA00001-K200700451

PATIENT

DRUGS (9)
  1. LEVOXYL [Suspect]
     Indication: HYPOTHYROIDISM
     Dosage: UNK, UNK
     Route: 048
     Dates: start: 19950101
  2. LEVOXYL [Suspect]
     Dosage: 1 MCG, QD
     Route: 048
     Dates: start: 20070301
  3. ATENOLOL [Concomitant]
  4. LASIX [Concomitant]
  5. NEXIUM [Concomitant]
  6. POTASSIUM CHLORIDE [Concomitant]
  7. LYRICA [Concomitant]
  8. GLIPIZIDE [Concomitant]
  9. ALTACE [Concomitant]
     Indication: HYPERTENSION
     Dosage: 5 MG, QD
     Route: 048

REACTIONS (4)
  - BLOOD TEST ABNORMAL [None]
  - DRUG TOXICITY [None]
  - NERVOUSNESS [None]
  - TREMOR [None]
